FAERS Safety Report 4774893-2 (Version None)
Quarter: 2005Q3

REPORT INFORMATION
  Report Type: 
  Country: None (occurrence: None)
  Receive Date: 20050919
  Receipt Date: 20050908
  Transmission Date: 20060218
  Serious: Yes (Death, Hospitalization)
  Sender: FDA-Public Use
  Company Number: GXKR2005JP01184

PATIENT
  Age: 68 Year
  Sex: Male
  Weight: 50 kg

DRUGS (6)
  1. RIFAMPICIN [Suspect]
     Indication: TUBERCULOSIS
  2. ISONIAZID [Suspect]
     Indication: TUBERCULOSIS
  3. PYRAZINAMIDE [Suspect]
     Indication: TUBERCULOSIS
  4. ETHAMBUTOL HCL [Suspect]
     Indication: TUBERCULOSIS
  5. CEFTRIAXONE [Suspect]
     Indication: TUBERCULOSIS
  6. FLUCONAZOLE [Suspect]
     Indication: TUBERCULOSIS

REACTIONS (2)
  - RESPIRATION ABNORMAL [None]
  - RESPIRATORY FAILURE [None]
